FAERS Safety Report 25406809 (Version 2)
Quarter: 2025Q2

REPORT INFORMATION
  Report Type: Spontaneous
  Country: CA (occurrence: CA)
  Receive Date: 20250606
  Receipt Date: 20250630
  Transmission Date: 20250717
  Serious: Yes (Other)
  Sender: INTERCEPT PHARMACEUTICALS
  Company Number: CA-ADVANZ PHARMA-202310009322

PATIENT
  Age: 69 Year
  Sex: Female

DRUGS (3)
  1. OCALIVA [Suspect]
     Active Substance: OBETICHOLIC ACID
     Indication: Primary biliary cholangitis
     Dosage: 5 MG, QD (OCALIVA) IN THE EVENING
     Route: 048
     Dates: start: 20211210, end: 202506
  2. URSODIOL [Concomitant]
     Active Substance: URSODIOL
     Indication: Primary biliary cholangitis
     Dates: start: 19950101
  3. CARVEDILOL [Concomitant]
     Active Substance: CARVEDILOL

REACTIONS (10)
  - Thrombocytopenia [Unknown]
  - Hepatic cirrhosis [Unknown]
  - Hypersensitivity [Unknown]
  - Unevaluable event [Unknown]
  - Blood pressure abnormal [Unknown]
  - Hepatic mass [Unknown]
  - Varices oesophageal [Unknown]
  - Arthralgia [Unknown]
  - Therapeutic response unexpected [Unknown]
  - Therapy cessation [Unknown]

NARRATIVE: CASE EVENT DATE: 20250601
